FAERS Safety Report 4383767-0 (Version None)
Quarter: 2004Q2

REPORT INFORMATION
  Report Type: 
  Country: None (occurrence: None)
  Receive Date: 20040623
  Receipt Date: 20040616
  Transmission Date: 20050107
  Serious: Yes (Life-Threatening, Hospitalization, Disabling)
  Sender: FDA-Public Use
  Company Number: US-MERCK-0406USA01686

PATIENT
  Age: 77 Year
  Sex: Male

DRUGS (9)
  1. [THERAPY UNSPECIFIED] [Concomitant]
     Route: 065
  2. [THERAPY UNSPECIFIED] [Concomitant]
     Indication: HYPERTENSION
     Route: 065
  3. [THERAPY UNSPECIFIED] [Concomitant]
     Route: 065
  4. ALLOPURINOL [Concomitant]
     Route: 065
  5. ASPIRIN [Concomitant]
     Route: 065
  6. EVENING PRIMROSE OIL [Concomitant]
     Route: 065
  7. NEURONTIN [Concomitant]
     Route: 065
  8. OCUVITE [Concomitant]
     Route: 065
  9. ZOCOR [Suspect]
     Indication: DYSLIPIDAEMIA
     Route: 048
     Dates: start: 20000101

REACTIONS (2)
  - CARDIAC FAILURE CONGESTIVE [None]
  - CORONARY ARTERY OCCLUSION [None]
